FAERS Safety Report 5316349-4 (Version None)
Quarter: 2007Q2

REPORT INFORMATION
  Report Type: 
  Country: None (occurrence: None)
  Receive Date: 20070430
  Receipt Date: 20070413
  Transmission Date: 20071010
  Serious: Yes (Other)
  Sender: FDA-Public Use
  Company Number: T200600905

PATIENT
  Age: 55 Year
  Sex: Female

DRUGS (11)
  1. OPTIMARK IN GLASS VIALS (GADOVERSETAMIDE) INJECTION [Suspect]
     Dosage: SINGLE, SINGLE, SINGLE
     Dates: start: 20050303, end: 20050303
  2. OPTIMARK IN GLASS VIALS (GADOVERSETAMIDE) INJECTION [Suspect]
     Dosage: SINGLE, SINGLE, SINGLE
     Dates: start: 20051006, end: 20051006
  3. OPTIMARK IN GLASS VIALS (GADOVERSETAMIDE) INJECTION [Suspect]
     Dosage: SINGLE, SINGLE, SINGLE
     Dates: start: 20051011, end: 20051011
  4. LEXAPRO [Concomitant]
  5. QUININE SULFATE [Concomitant]
  6. AVAPRO [Concomitant]
  7. SINGULAIR [Concomitant]
  8. FOLATE [Concomitant]
  9. PERCOCET [Concomitant]
  10. SODIUM BICARBONATE IN PLASTIC CONTAINER [Concomitant]
  11. BENADRYL [Concomitant]

REACTIONS (2)
  - HAEMODIALYSIS [None]
  - NEPHROGENIC FIBROSING DERMOPATHY [None]
